FAERS Safety Report 24346663 (Version 1)
Quarter: 2024Q3

REPORT INFORMATION
  Report Type: Spontaneous
  Country: US (occurrence: US)
  Receive Date: 20240921
  Receipt Date: 20240921
  Transmission Date: 20241017
  Serious: No
  Sender: CIPLA
  Company Number: US-CIPLA LTD.-2024US03658

PATIENT

DRUGS (4)
  1. ALENDRONATE [Interacting]
     Active Substance: ALENDRONATE SODIUM
     Indication: Bone density abnormal
     Dosage: 70 MILLIGRAM, ONCE IN A WEEK
     Route: 048
  2. CALCIUM CITRATE [Interacting]
     Active Substance: CALCIUM CITRATE
     Indication: Product used for unknown indication
     Dosage: 200 MILLIGRAM, BID (TWICE A DAY)
     Route: 048
  3. ASPIRIN [Concomitant]
     Active Substance: ASPIRIN
     Indication: Product used for unknown indication
     Dosage: UNK
     Route: 065
  4. IBUPROFEN [Concomitant]
     Active Substance: IBUPROFEN
     Indication: Product used for unknown indication
     Dosage: UNK
     Route: 065

REACTIONS (8)
  - Gastrointestinal disorder [Not Recovered/Not Resolved]
  - Oropharyngeal discomfort [Not Recovered/Not Resolved]
  - Urinary tract disorder [Not Recovered/Not Resolved]
  - Muscle spasms [Not Recovered/Not Resolved]
  - Condition aggravated [Not Recovered/Not Resolved]
  - Abdominal discomfort [Not Recovered/Not Resolved]
  - Product dispensing error [Unknown]
  - Drug interaction [Unknown]
